FAERS Safety Report 8078919-2 (Version None)
Quarter: 2012Q1

REPORT INFORMATION
  Report Type: 
  Country: None (occurrence: None)
  Receive Date: 20120128
  Receipt Date: 20110420
  Transmission Date: 20120608
  Serious: No
  Sender: FDA-Public Use
  Company Number: US-ABBOTT-11P-163-0718860-00

PATIENT
  Sex: Female

DRUGS (15)
  1. DECADRON [Concomitant]
     Indication: PRODUCT USED FOR UNKNOWN INDICATION
  2. PRILOSEC [Concomitant]
     Indication: GASTROOESOPHAGEAL REFLUX DISEASE
  3. FLONASE [Concomitant]
     Indication: SEASONAL ALLERGY
     Dosage: 2 PUFFS EACH NOSTRIL DAILY
  4. PREDNISONE TAB [Concomitant]
     Indication: RHEUMATOID ARTHRITIS
     Dates: start: 20050101
  5. HYDROLORET [Concomitant]
     Indication: HYPERTENSION
  6. ACIDOPHILUS [Concomitant]
     Indication: PRODUCT USED FOR UNKNOWN INDICATION
     Dosage: DAILY
  7. HUMIRA [Suspect]
     Indication: RHEUMATOID ARTHRITIS
     Dates: start: 20110101, end: 20110313
  8. PRILOSEC [Concomitant]
     Indication: PEPTIC ULCER
  9. VITAMIN D [Concomitant]
     Indication: SUPPLEMENTATION THERAPY
     Dosage: 1 TAB IN MORNING AND 1 TAB AT NIGHT
  10. HUMIRA [Suspect]
     Dates: start: 20110403
  11. CALCIUM [Concomitant]
     Indication: SUPPLEMENTATION THERAPY
     Dosage: 1 TAB IN THE MORNING AND 1 TAB AT NIGHT
  12. METHOTREXATE [Concomitant]
     Indication: RHEUMATOID ARTHRITIS
     Dates: start: 20050101
  13. PLAQUENIL [Concomitant]
     Indication: RHEUMATOID ARTHRITIS
  14. FOLIC ACID [Concomitant]
     Indication: SUPPLEMENTATION THERAPY
  15. MULTI-VITAMINS [Concomitant]
     Indication: SUPPLEMENTATION THERAPY

REACTIONS (19)
  - ADRENAL DISORDER [None]
  - ADRENOCORTICAL INSUFFICIENCY ACUTE [None]
  - HYPOKALAEMIA [None]
  - TENDERNESS [None]
  - ORTHOSTATIC HYPOTENSION [None]
  - MYALGIA [None]
  - NASAL CONGESTION [None]
  - INSOMNIA [None]
  - HYPOAESTHESIA [None]
  - BURNING SENSATION [None]
  - PIGMENTATION DISORDER [None]
  - COUGH [None]
  - BLOOD PRESSURE DECREASED [None]
  - INFLUENZA LIKE ILLNESS [None]
  - BLOOD GLUCOSE INCREASED [None]
  - MUSCULOSKELETAL STIFFNESS [None]
  - PALPITATIONS [None]
  - OEDEMA PERIPHERAL [None]
  - ARTHRALGIA [None]
